FAERS Safety Report 9792792 (Version 1)
Quarter: 2014Q1

REPORT INFORMATION
  Report Type: Report from Study
  Country: US (occurrence: US)
  Receive Date: 20140102
  Receipt Date: 20140102
  Transmission Date: 20141002
  Serious: No
  Sender: FDA-Public Use
  Company Number: US-SA-2013SA112922

PATIENT
  Age: 76 Year
  Sex: Female

DRUGS (10)
  1. AUBAGIO [Suspect]
     Indication: MULTIPLE SCLEROSIS
     Route: 048
     Dates: start: 20131029
  2. CELEXA [Concomitant]
  3. TOPROL XL [Concomitant]
  4. SYNTHROID [Concomitant]
  5. NORVASC [Concomitant]
  6. PLAVIX [Concomitant]
  7. NEURONTIN [Concomitant]
  8. OMEPRAZOLE [Concomitant]
  9. PREDNISONE [Concomitant]
  10. VITAMIN D [Concomitant]

REACTIONS (4)
  - Motor dysfunction [Unknown]
  - Gait disturbance [Unknown]
  - Cough [Unknown]
  - Fatigue [Unknown]
